FAERS Safety Report 5337965-X (Version None)
Quarter: 2007Q2

REPORT INFORMATION
  Report Type: 
  Country: None (occurrence: None)
  Receive Date: 20070530
  Receipt Date: 20070518
  Transmission Date: 20071010
  Serious: Yes (Other)
  Sender: FDA-Public Use
  Company Number: PHBS2007ES08088

PATIENT
  Age: 20 Year
  Sex: Female

DRUGS (2)
  1. TORECAN [Suspect]
     Indication: VERTIGO
     Route: 048
     Dates: start: 20070512
  2. VOLTAREN [Suspect]
     Indication: SPINAL DISORDER
     Dosage: 50 MG, UNK
     Route: 048

REACTIONS (5)
  - DYSTONIA [None]
  - EXTRAPYRAMIDAL DISORDER [None]
  - GLOSSITIS [None]
  - HYPERSENSITIVITY [None]
  - RESPIRATORY DISTRESS [None]
